FAERS Safety Report 10256437 (Version 1)
Quarter: 2014Q2

REPORT INFORMATION
  Report Type: Spontaneous
  Country: US (occurrence: US)
  Receive Date: 20140624
  Receipt Date: 20140624
  Transmission Date: 20141212
  Serious: No
  Sender: FDA-Public Use
  Company Number: US-ZOGENIX, INC.-2012ZX000190

PATIENT
  Sex: Female
  Weight: 61.29 kg

DRUGS (9)
  1. SUMAVEL DOSEPRO [Suspect]
     Indication: MIGRAINE
  2. NEURONTIN [Concomitant]
     Indication: MIGRAINE
     Route: 048
  3. DOXEPIN [Concomitant]
     Indication: MIGRAINE
     Route: 048
  4. NEXIUM [Concomitant]
     Indication: PRODUCT USED FOR UNKNOWN INDICATION
     Route: 048
  5. ROBAXIN [Concomitant]
     Indication: MIGRAINE
     Route: 048
  6. NORGESIC [Concomitant]
     Indication: MIGRAINE
     Route: 048
  7. BACLOFEN [Concomitant]
     Indication: MIGRAINE
     Route: 048
  8. IMITREX [Concomitant]
     Indication: MIGRAINE
  9. FEVERFEW [Concomitant]
     Indication: PRODUCT USED FOR UNKNOWN INDICATION

REACTIONS (5)
  - Injection site haemorrhage [Recovered/Resolved]
  - Injection site bruising [Recovered/Resolved]
  - Injection site pain [Recovered/Resolved]
  - Injection site urticaria [Recovered/Resolved]
  - Drug administered at inappropriate site [Recovered/Resolved]
